FAERS Safety Report 19294945 (Version 1)
Quarter: 2021Q2

REPORT INFORMATION
  Report Type: Spontaneous
  Country: CN (occurrence: CN)
  Receive Date: 20210524
  Receipt Date: 20210524
  Transmission Date: 20210717
  Serious: Yes (Other)
  Sender: FDA-Public Use
  Company Number: CN-ASTRAZENECA-2021A443533

PATIENT
  Age: 70 Year
  Sex: Female

DRUGS (3)
  1. VALSARTAN. [Concomitant]
     Active Substance: VALSARTAN
     Indication: HYPERTENSION
  2. ANTIHYPERTENSIVE DRUGS [Concomitant]
     Active Substance: UNSPECIFIED INGREDIENT
  3. NEXIUM [Suspect]
     Active Substance: ESOMEPRAZOLE MAGNESIUM
     Indication: ABDOMINAL DISCOMFORT
     Route: 048

REACTIONS (2)
  - Cardiac failure [Recovering/Resolving]
  - Peripheral swelling [Recovered/Resolved]
